FAERS Safety Report 6528584-8 (Version None)
Quarter: 2010Q1

REPORT INFORMATION
  Report Type: 
  Country: None (occurrence: None)
  Receive Date: 20100105
  Receipt Date: 20100105
  Transmission Date: 20100710
  Serious: Yes (Death)
  Sender: FDA-Public Use
  Company Number: None

PATIENT
  Age: 26 Year
  Sex: Male
  Weight: 129.7287 kg

DRUGS (1)
  1. CHANTIX [Suspect]
     Indication: SMOKING CESSATION THERAPY
     Dosage: .05 MG 1 PER DAY PO
     Route: 048
     Dates: start: 20091221, end: 20091228

REACTIONS (5)
  - AGITATION [None]
  - ANGER [None]
  - COMPLETED SUICIDE [None]
  - DEPRESSION [None]
  - PARANOIA [None]
